FAERS Safety Report 19985782 (Version 1)
Quarter: 2021Q4

REPORT INFORMATION
  Report Type: Spontaneous
  Country: US (occurrence: US)
  Receive Date: 20211021
  Receipt Date: 20211021
  Transmission Date: 20220303
  Serious: Yes (Death)
  Sender: FDA-Public Use
  Company Number: None

PATIENT
  Age: 72 Year
  Sex: Male

DRUGS (7)
  1. VYNDAMAX [Suspect]
     Active Substance: TAFAMIDIS
     Indication: Amyloidosis
     Route: 048
     Dates: start: 20200220, end: 20211020
  2. CEPHALEXIN [Concomitant]
     Active Substance: CEPHALEXIN
  3. COLCHICINE [Concomitant]
     Active Substance: COLCHICINE
  4. INDOMETHACIN [Concomitant]
     Active Substance: INDOMETHACIN
  5. MIDODRINE [Concomitant]
     Active Substance: MIDODRINE
  6. PREDNISONE [Concomitant]
     Active Substance: PREDNISONE
  7. TORSEMIDE [Concomitant]
     Active Substance: TORSEMIDE

REACTIONS (1)
  - Death [None]

NARRATIVE: CASE EVENT DATE: 20211020
